FAERS Safety Report 5806846-7 (Version None)
Quarter: 2008Q3

REPORT INFORMATION
  Report Type: 
  Country: None (occurrence: None)
  Receive Date: 20080711
  Receipt Date: 20080707
  Transmission Date: 20090109
  Serious: Yes (Hospitalization)
  Sender: FDA-Public Use
  Company Number: JP-BRISTOL-MYERS SQUIBB COMPANY-14255392

PATIENT
  Age: 62 Year
  Sex: Male

DRUGS (9)
  1. BRIPLATIN [Suspect]
     Indication: PERITONEAL MESOTHELIOMA MALIGNANT
     Route: 041
     Dates: start: 20080213, end: 20080213
  2. ALIMTA [Suspect]
     Indication: PERITONEAL MESOTHELIOMA MALIGNANT
     Route: 041
     Dates: start: 20080213, end: 20080213
  3. PANVITAN [Concomitant]
     Route: 048
     Dates: start: 20080224, end: 20080224
  4. CYANOCOBALAMIN [Concomitant]
     Route: 030
     Dates: start: 20080204
  5. RILMAZAFONE HCL [Concomitant]
     Route: 048
     Dates: start: 20080130, end: 20080225
  6. TAKEPRON [Concomitant]
     Route: 048
     Dates: start: 20080130, end: 20080224
  7. MOBIC [Concomitant]
     Route: 048
     Dates: start: 20080215, end: 20080224
  8. FENTANYL TRANSDERMAL SYSTEM [Concomitant]
     Route: 062
     Dates: start: 20080121, end: 20080317
  9. MAGMITT [Concomitant]
     Route: 048
     Dates: start: 20080117, end: 20080221

REACTIONS (10)
  - BLOOD UREA INCREASED [None]
  - C-REACTIVE PROTEIN INCREASED [None]
  - LYMPHOCYTE COUNT DECREASED [None]
  - MALAISE [None]
  - NAUSEA [None]
  - NEUTROPHIL COUNT DECREASED [None]
  - PLATELET COUNT DECREASED [None]
  - RENAL DISORDER [None]
  - VOMITING [None]
  - WHITE BLOOD CELL COUNT DECREASED [None]
